FAERS Safety Report 5480939-9 (Version None)
Quarter: 2007Q4

REPORT INFORMATION
  Report Type: 
  Country: None (occurrence: None)
  Receive Date: 20071009
  Receipt Date: 20071001
  Transmission Date: 20080405
  Serious: Yes (Other)
  Sender: FDA-Public Use
  Company Number: DK-ABBOTT-07P-044-0377723-00

PATIENT
  Sex: Female
  Weight: 33 kg

DRUGS (17)
  1. HUMIRA [Suspect]
     Indication: RHEUMATOID ARTHRITIS
     Route: 058
     Dates: start: 20070611, end: 20070625
  2. HUMIRA [Suspect]
     Route: 058
     Dates: start: 20070723, end: 20070723
  3. METHOTREXATE [Concomitant]
     Indication: RHEUMATOID ARTHRITIS
     Route: 048
     Dates: start: 20070126, end: 20070606
  4. ISOSORBIDE MONONITRATE [Concomitant]
     Indication: ANGINA PECTORIS
     Dates: start: 20050901, end: 20070601
  5. ISOSORBIDE MONONITRATE [Concomitant]
     Dates: start: 20070601, end: 20070701
  6. ISOSORBIDE MONONITRATE [Concomitant]
     Dates: start: 20070701
  7. GLYCERYL TRINITRATE [Concomitant]
     Indication: ANGINA PECTORIS
     Dates: start: 20050901
  8. PREDNISOLONE [Concomitant]
     Indication: DRUG USE FOR UNKNOWN INDICATION
  9. OXYCODONE HYDROCHLORIDE [Concomitant]
     Indication: DRUG USE FOR UNKNOWN INDICATION
  10. OXYTOCIN [Concomitant]
     Indication: DRUG USE FOR UNKNOWN INDICATION
  11. ALENDRONATE SODIUM [Concomitant]
     Indication: DRUG USE FOR UNKNOWN INDICATION
  12. PARACETAMOL [Concomitant]
     Indication: DRUG USE FOR UNKNOWN INDICATION
  13. ESOMEPRAZOLE MAGNESIUM [Concomitant]
     Indication: DRUG USE FOR UNKNOWN INDICATION
  14. MAGNESIUM HYDROXIDE TAB [Concomitant]
     Indication: DRUG USE FOR UNKNOWN INDICATION
  15. CENTYL CUM KC1 [Concomitant]
     Indication: DRUG USE FOR UNKNOWN INDICATION
  16. CYANOCOBALAMIN [Concomitant]
     Indication: DRUG USE FOR UNKNOWN INDICATION
     Route: 050
  17. FOLIC ACID [Concomitant]
     Indication: DRUG USE FOR UNKNOWN INDICATION

REACTIONS (3)
  - ANGINA PECTORIS [None]
  - DRUG INEFFECTIVE [None]
  - HEADACHE [None]
